FAERS Safety Report 4984914-X (Version None)
Quarter: 2006Q2

REPORT INFORMATION
  Report Type: 
  Country: None (occurrence: None)
  Receive Date: 20060426
  Receipt Date: 20060426
  Transmission Date: 20061013
  Serious: Yes (Hospitalization)
  Sender: FDA-Public Use
  Company Number: None

PATIENT
  Age: 57 Year
  Sex: Male
  Weight: 99.3377 kg

DRUGS (4)
  1. ERBITUX [Suspect]
     Indication: TONSIL CANCER
     Dosage: 250 ONCE/WEEK IV DRIP
     Route: 041
     Dates: start: 20060307, end: 20060502
  2. CARBOPLATIN [Concomitant]
  3. PACLITXEL [Concomitant]
  4. RADIATION THERAPY [Concomitant]

REACTIONS (11)
  - ANAEMIA [None]
  - CONFUSIONAL STATE [None]
  - DIARRHOEA [None]
  - HAEMOPTYSIS [None]
  - INCREASED UPPER AIRWAY SECRETION [None]
  - LEUKOPENIA [None]
  - MALAISE [None]
  - NAUSEA [None]
  - NEUTROPENIA [None]
  - ORAL PAIN [None]
  - PRODUCTIVE COUGH [None]
